FAERS Safety Report 6024482-7 (Version None)
Quarter: 2008Q4

REPORT INFORMATION
  Report Type: 
  Country: None (occurrence: None)
  Receive Date: 20081231
  Receipt Date: 20080905
  Transmission Date: 20090506
  Serious: No
  Sender: FDA-Public Use
  Company Number: US-BRISTOL-MYERS SQUIBB COMPANY-14326607

PATIENT
  Age: 74 Year
  Sex: Female
  Weight: 54 kg

DRUGS (2)
  1. ORENCIA [Suspect]
     Indication: RHEUMATOID ARTHRITIS
     Dosage: 3 DOSAGE FORM = 3 VIALS
     Route: 042
  2. METHOTREXATE [Concomitant]

REACTIONS (4)
  - DYSPHONIA [None]
  - DYSPNOEA [None]
  - PRODUCTIVE COUGH [None]
  - WHEEZING [None]
